FAERS Safety Report 14071676 (Version 1)
Quarter: 2017Q4

REPORT INFORMATION
  Report Type: Spontaneous
  Country: US (occurrence: US)
  Receive Date: 20171011
  Receipt Date: 20171011
  Transmission Date: 20180321
  Serious: No
  Sender: FDA-Public Use
  Company Number: US-PFIZER INC-2017437027

PATIENT
  Age: 55 Year
  Sex: Female

DRUGS (4)
  1. GABAPENTIN. [Suspect]
     Active Substance: GABAPENTIN
     Dosage: 3600 MG DAILY
     Route: 048
  2. FENTANYL. [Concomitant]
     Active Substance: FENTANYL
     Indication: PAIN
     Dosage: 75MCG PATCH CHANGE EVERY 3 DAYS
  3. GABAPENTIN. [Suspect]
     Active Substance: GABAPENTIN
     Indication: NEURALGIA
     Dosage: 3200 MG, 2X/DAY (400MG CAPSULES, 8 CAPSULES BY MOUTH IN THE MORNING AND 8 CAPSULES BY MOUTH AT NIGH)
     Route: 048
  4. OXYCODONE [Concomitant]
     Active Substance: OXYCODONE
     Indication: BREAKTHROUGH PAIN
     Dosage: 5MG, TAKE 5 A DAY

REACTIONS (2)
  - Overdose [Unknown]
  - Drug ineffective for unapproved indication [Unknown]
